FAERS Safety Report 8485828-3 (Version None)
Quarter: 2012Q3

REPORT INFORMATION
  Report Type: 
  Country: None (occurrence: None)
  Receive Date: 20120703
  Receipt Date: 20120628
  Transmission Date: 20120928
  Serious: Yes (Other)
  Sender: FDA-Public Use
  Company Number: PHHY2012BG056265

PATIENT
  Age: 38 Year
  Sex: Female

DRUGS (1)
  1. SEBIVO [Suspect]
     Indication: HEPATITIS B
     Dosage: 600 MG, UNK
     Route: 048
     Dates: start: 20111129

REACTIONS (3)
  - NORMAL NEWBORN [None]
  - MATERNAL EXPOSURE DURING PREGNANCY [None]
  - PRE-ECLAMPSIA [None]
